FAERS Safety Report 4957811-3 (Version None)
Quarter: 2006Q1

REPORT INFORMATION
  Report Type: 
  Country: None (occurrence: None)
  Receive Date: 20060324
  Receipt Date: 20060313
  Transmission Date: 20060701
  Serious: Yes (Hospitalization)
  Sender: FDA-Public Use
  Company Number: GXKR2006GB01471

PATIENT
  Age: 63 Year
  Sex: Male

DRUGS (4)
  1. INDOMETHACIN [Suspect]
     Dosage: 50 MG, QID
  2. FUROSEMIDE [Suspect]
     Dosage: 250 MG, TID
  3. DIGOXIN [Concomitant]
  4. SPIRONOLCTONE                    (SPIRONOLACTONE) [Concomitant]

REACTIONS (6)
  - CARDIAC FAILURE CONGESTIVE [None]
  - CONDITION AGGRAVATED [None]
  - DRUG INTERACTION [None]
  - GENERALISED OEDEMA [None]
  - GOUT [None]
  - TRICUSPID VALVE INCOMPETENCE [None]
